FAERS Safety Report 8440459-6 (Version None)
Quarter: 2012Q2

REPORT INFORMATION
  Report Type: 
  Country: None (occurrence: None)
  Receive Date: 20120615
  Receipt Date: 20120606
  Transmission Date: 20120825
  Serious: Yes (Life-Threatening, Disabling, Other)
  Sender: FDA-Public Use
  Company Number: US-GLAXOSMITHKLINE-A0980352A

PATIENT
  Age: 3 Year
  Sex: Male

DRUGS (2)
  1. NO CONCURRENT MEDICATION [Concomitant]
  2. VENTOLIN [Suspect]
     Indication: BRONCHIAL HYPERREACTIVITY
     Dosage: 2PUFF FOUR TIMES PER DAY
     Route: 055

REACTIONS (5)
  - PRODUCT QUALITY ISSUE [None]
  - STATUS ASTHMATICUS [None]
  - DYSPNOEA [None]
  - RESPIRATORY RATE INCREASED [None]
  - FATIGUE [None]
